FAERS Safety Report 6406049-1 (Version None)
Quarter: 2009Q4

REPORT INFORMATION
  Report Type: 
  Country: None (occurrence: None)
  Receive Date: 20091016
  Receipt Date: 20091016
  Transmission Date: 20100525
  Serious: No
  Sender: FDA-Public Use
  Company Number: None

PATIENT
  Sex: Male
  Weight: 116.1208 kg

DRUGS (2)
  1. CHANTIX [Suspect]
     Indication: EX-TOBACCO USER
     Dosage: 1 2 X DAY PO
     Route: 048
     Dates: start: 20071024, end: 20071031
  2. CHANTIX [Suspect]
     Indication: EX-TOBACCO USER
     Dosage: 1 2 X DAY PO
     Route: 048
     Dates: start: 20071101, end: 20071107

REACTIONS (2)
  - NIGHTMARE [None]
  - TYPE 2 DIABETES MELLITUS [None]
